FAERS Safety Report 9343004 (Version 3)
Quarter: 2014Q1

REPORT INFORMATION
  Report Type: Spontaneous
  Country: US (occurrence: US)
  Receive Date: 20130611
  Receipt Date: 20140227
  Transmission Date: 20141002
  Serious: Yes (Hospitalization)
  Sender: FDA-Public Use
  Company Number: US-B.I. PHARMACEUTICALS,INC./RIDGEFIELD-2013-BI-16108BP

PATIENT
  Sex: Female
  Weight: 88 kg

DRUGS (21)
  1. TYLENOL [Concomitant]
     Route: 065
  2. PEPTOBISMOL [Concomitant]
     Route: 065
  3. ALLOPURINOL [Concomitant]
     Dosage: 100 MG
     Route: 065
  4. METOPROLOL [Concomitant]
     Dosage: 200 MG
     Route: 065
  5. VYTORIN [Concomitant]
     Route: 048
  6. VALTURNA [Concomitant]
     Route: 048
  7. JANUVIA [Concomitant]
     Dosage: 10 MG
     Route: 048
  8. BYSTOLIC [Concomitant]
     Dosage: 10 MG
     Route: 048
  9. METFORMIN [Concomitant]
     Dosage: 2000 MG
     Route: 048
  10. AMLODIPINE [Concomitant]
     Route: 065
  11. DIOVAN [Concomitant]
     Dosage: 320 MG
     Route: 065
  12. SPIRONOLACTONE [Concomitant]
     Dosage: 25 MG
     Route: 065
  13. CENTRUM SILVER [Concomitant]
     Route: 048
  14. FUROSEMIDE [Concomitant]
     Dosage: 20 MG
     Route: 048
  15. PRADAXA [Suspect]
     Indication: CEREBROVASCULAR ACCIDENT PROPHYLAXIS
     Dosage: 150 MG
     Route: 048
     Dates: start: 201106, end: 20110819
  16. PRADAXA [Suspect]
     Indication: THROMBOSIS PROPHYLAXIS
  17. PRADAXA [Suspect]
     Indication: ATRIAL FIBRILLATION
  18. HYDROCODONE/ACETAMINOPHEN [Concomitant]
     Route: 065
  19. CYCLOBENZAPRINE [Concomitant]
     Route: 065
  20. TEMAZEPAM [Concomitant]
     Dosage: 15 MG
     Route: 048
  21. ECONAZOLE [Concomitant]
     Route: 065

REACTIONS (5)
  - Upper gastrointestinal haemorrhage [Recovered/Resolved]
  - Haemorrhagic anaemia [Unknown]
  - Coagulopathy [Unknown]
  - Renal failure acute [Unknown]
  - Contusion [Unknown]
